FAERS Safety Report 11000143 (Version 1)
Quarter: 2015Q2

REPORT INFORMATION
  Report Type: Spontaneous
  Country: US (occurrence: US)
  Receive Date: 20150408
  Receipt Date: 20150408
  Transmission Date: 20150821
  Serious: No
  Sender: FDA-Public Use
  Company Number: US-SA-2014SA100021

PATIENT
  Age: 6 Year
  Sex: Female

DRUGS (1)
  1. CHILDRENS ALLEGRA ALLERGY [Suspect]
     Active Substance: FEXOFENADINE HYDROCHLORIDE
     Indication: HYPERSENSITIVITY
     Route: 048
     Dates: start: 201407, end: 201407

REACTIONS (7)
  - Depressed mood [Unknown]
  - Decreased appetite [Unknown]
  - Depression [Unknown]
  - Diarrhoea [Unknown]
  - Anxiety [Unknown]
  - Mood altered [Unknown]
  - Crying [Unknown]
